FAERS Safety Report 21957708 (Version 3)
Quarter: 2023Q1

REPORT INFORMATION
  Report Type: Spontaneous
  Country: US (occurrence: US)
  Receive Date: 20230206
  Receipt Date: 20230214
  Transmission Date: 20230418
  Serious: No
  Sender: FDA-Public Use
  Company Number: US-002147023-NVSC2023US023914

PATIENT
  Age: 32 Year
  Sex: Female
  Weight: 86 kg

DRUGS (1)
  1. ESTRADIOL [Suspect]
     Active Substance: ESTRADIOL
     Indication: Ovarian failure
     Dosage: 0.1 MG
     Route: 065
     Dates: start: 2020

REACTIONS (8)
  - Feeling abnormal [Unknown]
  - Confusional state [Unknown]
  - Memory impairment [Unknown]
  - Decreased activity [Unknown]
  - Loss of libido [Unknown]
  - General physical health deterioration [Unknown]
  - Expired product administered [Unknown]
  - Off label use [Unknown]
